FAERS Safety Report 9103050 (Version 4)
Quarter: 2014Q3

REPORT INFORMATION
  Report Type: Spontaneous
  Country: BR (occurrence: BR)
  Receive Date: 20130219
  Receipt Date: 20140915
  Transmission Date: 20150326
  Serious: Yes (Death, Other)
  Sender: FDA-Public Use
  Company Number: BR-BAYER-2013-012496

PATIENT

DRUGS (1)
  1. MAGNEVISTAN [Suspect]
     Active Substance: GADOPENTETATE DIMEGLUMINE
     Indication: NUCLEAR MAGNETIC RESONANCE IMAGING BRAIN
     Dosage: ONCE
     Route: 042
     Dates: start: 20130128, end: 20130128

REACTIONS (14)
  - Haemolysis [None]
  - Chemical poisoning [Fatal]
  - Convulsion [Fatal]
  - Hepatic function abnormal [None]
  - Platelet count decreased [None]
  - Pain [None]
  - Formication [None]
  - Blood lactic acid increased [None]
  - Transaminases increased [None]
  - Nausea [None]
  - Wrong drug administered [None]
  - Air embolism [Fatal]
  - Retching [None]
  - Dizziness [None]

NARRATIVE: CASE EVENT DATE: 201301
